FAERS Safety Report 6504030-5 (Version None)
Quarter: 2009Q4

REPORT INFORMATION
  Report Type: 
  Country: None (occurrence: None)
  Receive Date: 20091216
  Receipt Date: 20091216
  Transmission Date: 20100525
  Serious: Yes (Death)
  Sender: FDA-Public Use
  Company Number: None

PATIENT
  Sex: Female

DRUGS (9)
  1. REVLIMID [Suspect]
     Indication: MULTIPLE MYELOMA
     Dosage: 5MG DAILY ORAL
     Route: 048
     Dates: start: 20091105, end: 20091207
  2. RECLIMID [Concomitant]
  3. SIMVASTAIN [Concomitant]
  4. LUMIGAN [Concomitant]
  5. ATENOLOL [Concomitant]
  6. BACTRIM [Concomitant]
  7. ALENDRONATE SODIUM [Concomitant]
  8. ONDANSERTRON [Concomitant]
  9. FLUOXETINE [Concomitant]

REACTIONS (8)
  - ACIDOSIS [None]
  - ANAEMIA [None]
  - DIALYSIS [None]
  - LETHARGY [None]
  - MENTAL STATUS CHANGES [None]
  - MUSCULAR WEAKNESS [None]
  - RENAL FAILURE ACUTE [None]
  - URINARY TRACT OBSTRUCTION [None]
